FAERS Safety Report 4834299-4 (Version None)
Quarter: 2005Q4

REPORT INFORMATION
  Report Type: 
  Country: None (occurrence: None)
  Receive Date: 20051122
  Receipt Date: 20051111
  Transmission Date: 20060501
  Serious: Yes (Other)
  Sender: FDA-Public Use
  Company Number: CA-ROCHE-424692

PATIENT
  Weight: 4.2 kg

DRUGS (2)
  1. RIVOTRIL [Suspect]
     Indication: DRUG USE FOR UNKNOWN INDICATION
     Route: 064
  2. PAXIL [Suspect]
     Indication: DRUG USE FOR UNKNOWN INDICATION
     Route: 064

REACTIONS (8)
  - DRUG EXPOSURE DURING PREGNANCY [None]
  - HYPOTONIA [None]
  - HYPOTONIA NEONATAL [None]
  - NEONATAL RESPIRATORY DISTRESS SYNDROME [None]
  - NEONATAL TACHYPNOEA [None]
  - PREGNANCY [None]
  - RESPIRATORY DISTRESS [None]
  - TACHYPNOEA [None]
